FAERS Safety Report 19660491 (Version 1)
Quarter: 2021Q3

REPORT INFORMATION
  Report Type: Report from Study
  Country: US (occurrence: US)
  Receive Date: 20210805
  Receipt Date: 20210805
  Transmission Date: 20211014
  Serious: Yes (Other)
  Sender: FDA-Public Use
  Company Number: US-MYLANLABS-2021M1048477

PATIENT

DRUGS (2)
  1. MEMANTINE. [Suspect]
     Active Substance: MEMANTINE
     Dosage: 10 MILLIGRAM, BID (DOSE INCREASED BY 5MG/WEEK)
     Route: 065
  2. MEMANTINE. [Suspect]
     Active Substance: MEMANTINE
     Indication: HEADACHE
     Dosage: 5 MILLIGRAM, QD (INITIAL DOSE)
     Route: 065

REACTIONS (2)
  - Depressed level of consciousness [Unknown]
  - Off label use [Unknown]
